FAERS Safety Report 21821976 (Version 6)
Quarter: 2024Q2

REPORT INFORMATION
  Report Type: Report from Study
  Country: GB (occurrence: GB)
  Receive Date: 20230105
  Receipt Date: 20240528
  Transmission Date: 20240715
  Serious: Yes (Hospitalization, Other)
  Sender: FDA-Public Use
  Company Number: GB-CELLTRION INC.-2022GB019628

PATIENT

DRUGS (34)
  1. BEVACIZUMAB [Suspect]
     Active Substance: BEVACIZUMAB
     Indication: Hepatocellular carcinoma
     Dosage: 1200 MG
     Route: 065
     Dates: start: 20220302
  2. ATEZOLIZUMAB [Suspect]
     Active Substance: ATEZOLIZUMAB
     Indication: Hepatocellular carcinoma
     Dosage: 1200 MG, EVERY 3 WEEKS
     Route: 042
     Dates: start: 20220302
  3. CALCIUM CARBONATE\CHOLECALCIFEROL [Concomitant]
     Active Substance: CALCIUM CARBONATE\CHOLECALCIFEROL
     Dosage: UNK, QD
     Dates: start: 20220707
  4. AMOXICILLIN [Concomitant]
     Active Substance: AMOXICILLIN
     Dosage: EVERY 0.33 DAY
     Dates: start: 20230130, end: 20230206
  5. ANUSOL [BISMUTH OXIDE;MYROXYLON BALSAMUM BALSAM;ZINC OXIDE] [Concomitant]
     Dosage: EVERY 0.5 DAY
     Dates: start: 20220707
  6. SANDOCAL [CALCIUM CARBONATE;CALCIUM LACTATE GLUCONATE] [Concomitant]
     Dosage: EVERY 0.5 DAY
     Dates: start: 20220707, end: 20220710
  7. CARVEDILOL [Concomitant]
     Active Substance: CARVEDILOL
     Dosage: UNK, QD
     Dates: start: 20220615
  8. COCODAMOL [Concomitant]
     Active Substance: ACETAMINOPHEN\CODEINE PHOSPHATE
     Dosage: UNK
  9. FENTANYL [Concomitant]
     Active Substance: FENTANYL\FENTANYL CITRATE
     Dosage: 50 MG
     Dates: start: 20220708, end: 20220708
  10. FERROUS SULFATE [Concomitant]
     Active Substance: FERROUS SULFATE
     Dosage: UNK, QD
     Dates: start: 20230426
  11. FINASTERIDE [Concomitant]
     Active Substance: FINASTERIDE
     Dosage: UNK, QD
  12. GLICLAZIDE [Concomitant]
     Active Substance: GLICLAZIDE
     Dosage: UNK, QD
     Dates: start: 20220703
  13. GLICLAZIDE [Concomitant]
     Active Substance: GLICLAZIDE
     Dosage: UNK, QD
     Dates: start: 20230822
  14. HYDROCORTISONE [Concomitant]
     Active Substance: HYDROCORTISONE
     Dosage: EVERY 0.5 DAY
     Dates: start: 20220615
  15. HYDROCORTISONE [Concomitant]
     Active Substance: HYDROCORTISONE
     Dosage: UNK, QD
     Dates: start: 20221104
  16. HYDROCORTISONE [Concomitant]
     Active Substance: HYDROCORTISONE
     Dosage: UNK, QD
     Dates: start: 20221104
  17. LACTULOSE [Concomitant]
     Active Substance: LACTULOSE
     Dosage: 15 ML
     Dates: start: 20220703
  18. LANSOPRAZOLE [Concomitant]
     Active Substance: LANSOPRAZOLE
     Dosage: 30MG, QD
     Dates: start: 20220708
  19. POLYETHYLENE GLYCOLS [Concomitant]
     Active Substance: POLYETHYLENE GLYCOLS
     Indication: Constipation
     Dosage: UNK, QD
     Dates: start: 20220825
  20. MAGNESIUM CITRATE [Concomitant]
     Active Substance: MAGNESIUM CITRATE
     Dosage: EVERY 0.5 DAY
     Dates: start: 20220707
  21. MIDAZOLAM [Concomitant]
     Active Substance: MIDAZOLAM
     Dosage: 3 MG
     Dates: start: 20220708, end: 20220708
  22. MORPHINE SULFATE [Concomitant]
     Active Substance: MORPHINE SULFATE
     Dosage: UNK, EVERY 0.5 DAY
     Dates: start: 20230511, end: 20230822
  23. ACETAMINOPHEN [Concomitant]
     Active Substance: ACETAMINOPHEN
     Dosage: UNK
  24. PREGABALIN [Concomitant]
     Active Substance: PREGABALIN
     Dosage: 50 MG, EVERY 0.33 DAY
     Dates: start: 20220706, end: 20220920
  25. PREGABALIN [Concomitant]
     Active Substance: PREGABALIN
     Dosage: 100 MG, QD
     Dates: start: 20220701, end: 20220819
  26. PREGABALIN [Concomitant]
     Active Substance: PREGABALIN
     Dosage: 0.33 DAY
     Dates: start: 20231024
  27. PROPRANOLOL [Concomitant]
     Active Substance: PROPRANOLOL HYDROCHLORIDE
     Dosage: EVERY 0.5 DAY
  28. WHEY [Concomitant]
     Active Substance: WHEY
     Dosage: EVERY 0.33 DAY
     Dates: start: 20220707
  29. ALBUTEROL [Concomitant]
     Active Substance: ALBUTEROL
     Indication: Product used for unknown indication
     Dosage: 200 MICROGRAM
     Dates: start: 20220711
  30. SIMVASTATIN [Concomitant]
     Active Substance: SIMVASTATIN
     Dosage: UNK, QD
  31. SPIRONOLACTONE [Concomitant]
     Active Substance: SPIRONOLACTONE
     Indication: Product used for unknown indication
     Dosage: UNK, QD
     Dates: start: 20220611
  32. TERLIPRESSIN [Concomitant]
     Active Substance: TERLIPRESSIN
     Dosage: UNK
     Dates: start: 20220627
  33. THROMBIN [Concomitant]
     Active Substance: THROMBIN
     Dosage: UNK
     Dates: start: 20220626, end: 20220626
  34. TRIMETHOPRIM [Concomitant]
     Active Substance: TRIMETHOPRIM
     Dosage: EVERY 0.5 DAY
     Dates: start: 20230501, end: 20230504

REACTIONS (21)
  - Muscle spasms [Recovered/Resolved with Sequelae]
  - Insomnia [Not Recovered/Not Resolved]
  - Sciatica [Not Recovered/Not Resolved]
  - Urinary retention [Recovered/Resolved]
  - Cortisol decreased [Recovered/Resolved]
  - Varices oesophageal [Not Recovered/Not Resolved]
  - Blood calcium decreased [Recovered/Resolved]
  - Haemorrhoids [Not Recovered/Not Resolved]
  - Blood magnesium decreased [Recovered/Resolved]
  - Gastric varices [Not Recovered/Not Resolved]
  - Contusion [Recovered/Resolved]
  - Melaena [Recovered/Resolved]
  - Rectal haemorrhage [Recovered/Resolved]
  - Hyponatraemia [Recovered/Resolved]
  - Haematemesis [Recovered/Resolved]
  - Decreased appetite [Recovered/Resolved]
  - Anaemia [Recovered/Resolved]
  - Diarrhoea [Recovered/Resolved]
  - Fatigue [Not Recovered/Not Resolved]
  - Constipation [Not Recovered/Not Resolved]
  - Intentional product use issue [Unknown]

NARRATIVE: CASE EVENT DATE: 20220305
